FAERS Safety Report 4538279-8 (Version None)
Quarter: 2004Q4

REPORT INFORMATION
  Report Type: 
  Country: None (occurrence: None)
  Receive Date: 20041227
  Receipt Date: 20041209
  Transmission Date: 20050328
  Serious: Yes (Other)
  Sender: FDA-Public Use
  Company Number: JP-BRISTOL-MYERS SQUIBB COMPANY-12795274

PATIENT
  Age: 49 Year
  Sex: Male

DRUGS (13)
  1. IFOMIDE [Suspect]
     Indication: LYMPHOMA
     Route: 041
     Dates: start: 20041129, end: 20041202
  2. UROMITEXAN [Concomitant]
     Route: 041
     Dates: start: 20041129, end: 20041202
  3. VEPESID [Concomitant]
     Dates: start: 20041129, end: 20041203
  4. ROCEPHIN [Concomitant]
     Indication: PROPHYLAXIS
     Dates: start: 20041127, end: 20041203
  5. ALLOPURINOL [Concomitant]
     Indication: HYPERURICAEMIA
  6. URSO 250 [Concomitant]
     Dates: start: 20041129
  7. ITRIZOLE [Concomitant]
     Indication: PROPHYLAXIS
     Route: 048
     Dates: start: 20041127, end: 20041202
  8. CYTARABINE [Concomitant]
     Indication: LYMPHOMA
     Dosage: DOSAGE=2 G/M2/DAY FOR 2 DAYS
     Dates: start: 20041129, end: 20041130
  9. CONCENTRATED RED BLOOD CELLS [Concomitant]
     Dates: start: 20040906
  10. PLATELETS [Concomitant]
     Dates: start: 20040906
  11. PLASMA [Concomitant]
     Dates: start: 20040906
  12. ALBUMIN (HUMAN) [Concomitant]
     Dates: start: 20040906
  13. ANTITHROMBIN III [Concomitant]
     Dates: start: 20040906

REACTIONS (1)
  - ENCEPHALOPATHY [None]
